FAERS Safety Report 8434094-3 (Version None)
Quarter: 2012Q2

REPORT INFORMATION
  Report Type: 
  Country: None (occurrence: None)
  Receive Date: 20120613
  Receipt Date: 20120612
  Transmission Date: 20120825
  Serious: Yes (Hospitalization)
  Sender: FDA-Public Use
  Company Number: IT-PFIZER INC-2012123068

PATIENT
  Age: 44 Year
  Sex: Female

DRUGS (2)
  1. XANAX [Suspect]
     Dosage: 0.5 MG TABLETS, 1 DOSAGE UNIT, TOTAL DOSE
     Route: 048
     Dates: start: 20120305, end: 20120305
  2. XANAX [Suspect]
     Indication: ANXIETY
     Dosage: 0.75 MG/ML ORAL DROPS, 20 DROPS, TOTAL DOSE
     Route: 048
     Dates: start: 20120305, end: 20120305

REACTIONS (1)
  - SOPOR [None]
